FAERS Safety Report 4352270-6 (Version None)
Quarter: 2004Q2

REPORT INFORMATION
  Report Type: 
  Country: None (occurrence: None)
  Receive Date: 20040420
  Receipt Date: 20040304
  Transmission Date: 20050107
  Serious: Yes (Hospitalization)
  Sender: FDA-Public Use
  Company Number: 2004UW04058

PATIENT
  Age: 61 Year
  Sex: Female

DRUGS (5)
  1. PRILOSEC [Suspect]
     Dosage: 20 MG QD PO
     Route: 048
     Dates: end: 20040101
  2. PREMARIN [Concomitant]
  3. LEXAPRO [Concomitant]
  4. ASPIRIN [Concomitant]
  5. NASACORT [Concomitant]

REACTIONS (2)
  - NECK PAIN [None]
  - PAIN IN EXTREMITY [None]
